FAERS Safety Report 12828098 (Version 2)
Quarter: 2017Q1

REPORT INFORMATION
  Report Type: Spontaneous
  Country: US (occurrence: US)
  Receive Date: 20161007
  Receipt Date: 20170207
  Transmission Date: 20170428
  Serious: Yes (Hospitalization)
  Sender: FDA-Public Use
  Company Number: US-TEVA-699160USA

PATIENT
  Age: 61 Year
  Sex: Male
  Weight: 124 kg

DRUGS (6)
  1. PF-04950615;PLACEBO [Concomitant]
     Active Substance: BOCOCIZUMAB
     Indication: CARDIOVASCULAR DISORDER
     Route: 058
     Dates: start: 20140806
  2. XARELTO [Concomitant]
     Active Substance: RIVAROXABAN
     Route: 065
     Dates: start: 20160728
  3. SIMVASTATIN. [Concomitant]
     Active Substance: SIMVASTATIN
     Route: 065
     Dates: start: 200810
  4. ALBUTEROL. [Suspect]
     Active Substance: ALBUTEROL
     Indication: PNEUMONIA
     Dosage: 90 UG, 4X/DAY
     Route: 055
     Dates: start: 20160809, end: 20160811
  5. LEVAQUIN [Suspect]
     Active Substance: LEVOFLOXACIN
     Indication: PNEUMONIA
     Route: 048
     Dates: start: 20160809, end: 20160811
  6. LISINOPRIL. [Concomitant]
     Active Substance: LISINOPRIL
     Route: 065
     Dates: start: 200810

REACTIONS (2)
  - Condition aggravated [Recovered/Resolved]
  - Cardiac failure congestive [Recovered/Resolved]

NARRATIVE: CASE EVENT DATE: 20160811
